FAERS Safety Report 13170183 (Version 1)
Quarter: 2017Q1

REPORT INFORMATION
  Report Type: Report from Study
  Country: US (occurrence: US)
  Receive Date: 20170131
  Receipt Date: 20170131
  Transmission Date: 20170428
  Serious: Yes (Other)
  Sender: FDA-Public Use
  Company Number: US-MYLANLABS-2017M1005439

PATIENT

DRUGS (2)
  1. DEXAMETHASONE. [Suspect]
     Active Substance: DEXAMETHASONE
     Indication: PRODUCT USED FOR UNKNOWN INDICATION
     Dosage: CONCENTRATION: 10 MG/ML
     Route: 050
  2. PHENOL. [Concomitant]
     Active Substance: PHENOL
     Indication: LOCAL ANAESTHESIA
     Dosage: A DROP OF PHENOL
     Route: 061

REACTIONS (1)
  - Tympanic membrane perforation [Unknown]
